FAERS Safety Report 5891923-5 (Version None)
Quarter: 2008Q3

REPORT INFORMATION
  Report Type: 
  Country: None (occurrence: None)
  Receive Date: 20080918
  Receipt Date: 20080910
  Transmission Date: 20090109
  Serious: Yes (Other)
  Sender: FDA-Public Use
  Company Number: 2008SP018775

PATIENT
  Age: 26 Year
  Sex: Female

DRUGS (2)
  1. PEGATRON (PEGINTERFERON ALFA-2B W/RIBAVIRIN) (PEGYLATED INTERFERON ALF [Suspect]
     Indication: HEPATITIS C
     Dosage: 80 MCG; 800 MG;
     Dates: start: 20080905
  2. PEGATRON (PEGINTERFERON ALFA-2B W/RIBAVIRIN) (PEGYLATED INTERFERON ALF [Suspect]
     Indication: HEPATITIS C
     Dosage: 80 MCG; 800 MG;
     Dates: start: 20080905

REACTIONS (3)
  - ASTHENIA [None]
  - DIZZINESS [None]
  - DYSPNOEA [None]
